FAERS Safety Report 14199443 (Version 2)
Quarter: 2018Q1

REPORT INFORMATION
  Report Type: Report from Study
  Country: JP (occurrence: JP)
  Receive Date: 20171117
  Receipt Date: 20180130
  Transmission Date: 20180508
  Serious: No
  Sender: FDA-Public Use
  Company Number: JP-ACTELION-A-CH2017-162550

PATIENT
  Age: 6 Month
  Sex: Female

DRUGS (12)
  1. SAMSCA [Concomitant]
     Active Substance: TOLVAPTAN
  2. MUCODYNE [Concomitant]
     Active Substance: CARBOCYSTEINE
  3. HYDROCHLOROTHIAZIDE. [Concomitant]
     Active Substance: HYDROCHLOROTHIAZIDE
  4. GASMOTIN [Concomitant]
     Active Substance: MOSAPRIDE CITRATE
  5. OPSUMIT [Suspect]
     Active Substance: MACITENTAN
     Indication: PULMONARY ARTERIAL HYPERTENSION
     Dosage: 0.5 MG, OD
     Route: 048
     Dates: start: 20170616, end: 20170731
  6. ENALAPRIL [Concomitant]
     Active Substance: ENALAPRIL
  7. FAMOTIDINE. [Concomitant]
     Active Substance: FAMOTIDINE
  8. OXYGEN. [Concomitant]
     Active Substance: OXYGEN
  9. FUROSEMIDE. [Concomitant]
     Active Substance: FUROSEMIDE
  10. ALDACTONE A [Concomitant]
     Active Substance: SPIRONOLACTONE
  11. ADCIRCA [Concomitant]
     Active Substance: TADALAFIL
  12. MUCOSAL [Concomitant]

REACTIONS (6)
  - Hepatic function abnormal [Recovered/Resolved]
  - Blood bilirubin increased [Recovered/Resolved]
  - Blood alkaline phosphatase increased [Recovered/Resolved]
  - Alanine aminotransferase increased [Recovered/Resolved]
  - Gamma-glutamyltransferase increased [Recovered/Resolved]
  - Aspartate aminotransferase increased [Recovered/Resolved]

NARRATIVE: CASE EVENT DATE: 20170731
